FAERS Safety Report 17818628 (Version 2)
Quarter: 2021Q2

REPORT INFORMATION
  Report Type: Spontaneous
  Country: DE (occurrence: DE)
  Receive Date: 20200522
  Receipt Date: 20210609
  Transmission Date: 20210716
  Serious: Yes (Death, Other)
  Sender: FDA-Public Use
  Company Number: NVSC2020DE137712

PATIENT
  Age: 65 Year

DRUGS (6)
  1. DOCETAXEL. [Suspect]
     Active Substance: DOCETAXEL
     Indication: LUNG NEOPLASM MALIGNANT
     Dosage: UNK (3 CYCLES)
     Route: 065
     Dates: start: 20190925, end: 20191106
  2. PEMETREXED DISODIUM [Suspect]
     Active Substance: PEMETREXED DISODIUM
     Indication: LUNG NEOPLASM MALIGNANT
     Dosage: UNK, CYCLIC
     Route: 065
     Dates: end: 20191106
  3. NINTEDANIB [Suspect]
     Active Substance: NINTEDANIB
     Dosage: UNK (MAINTAINENCE THERAPY)
     Route: 065
  4. CISPLATIN. [Suspect]
     Active Substance: CISPLATIN
     Indication: LUNG NEOPLASM MALIGNANT
     Dosage: UNK UNK, CYCLIC
     Route: 065
     Dates: end: 20191106
  5. PEMBROLIZUMAB. [Suspect]
     Active Substance: PEMBROLIZUMAB
     Indication: LUNG NEOPLASM MALIGNANT
     Dosage: UNK (1ST LINE)
     Route: 065
  6. NINTEDANIB [Suspect]
     Active Substance: NINTEDANIB
     Indication: LUNG NEOPLASM MALIGNANT
     Dosage: UNK (3 CYCLES)
     Route: 065
     Dates: start: 20190925, end: 20191106

REACTIONS (2)
  - Malignant neoplasm progression [Fatal]
  - Death [Fatal]

NARRATIVE: CASE EVENT DATE: 20200131
